FAERS Safety Report 20314833 (Version 1)
Quarter: 2022Q1

REPORT INFORMATION
  Report Type: Other
  Country: US (occurrence: None)
  Receive Date: 20220110
  Receipt Date: 20220110
  Transmission Date: 20220424
  Serious: Yes (Death, Other)
  Sender: FDA-Public Use
  Company Number: US-ROCHE-2903052

PATIENT
  Age: 70 Year
  Sex: Female

DRUGS (15)
  1. RITUXIMAB [Suspect]
     Active Substance: RITUXIMAB
     Indication: Anti-neutrophil cytoplasmic antibody positive vasculitis
     Route: 042
  2. METHYLPREDNISOLONE [Suspect]
     Active Substance: METHYLPREDNISOLONE
     Indication: Anti-neutrophil cytoplasmic antibody positive vasculitis
     Route: 065
  3. METHYLPREDNISOLONE [Suspect]
     Active Substance: METHYLPREDNISOLONE
     Route: 042
  4. PREDNISONE [Suspect]
     Active Substance: PREDNISONE
     Indication: Anti-neutrophil cytoplasmic antibody positive vasculitis
     Route: 065
  5. PREDNISONE [Suspect]
     Active Substance: PREDNISONE
     Route: 065
  6. HYDROCORTISONE [Suspect]
     Active Substance: HYDROCORTISONE
     Indication: Anti-neutrophil cytoplasmic antibody positive vasculitis
     Dosage: 40 MG IN THE MORNING, 10 MG IN THE EVENING
     Route: 065
  7. CIPROFLOXACIN [Concomitant]
     Active Substance: CIPROFLOXACIN
  8. METRONIDAZOLE [Concomitant]
     Active Substance: METRONIDAZOLE
  9. VANCOMYCIN [Concomitant]
     Active Substance: VANCOMYCIN
  10. PIPERACILLIN AND TAZOBACTAM [Concomitant]
     Active Substance: PIPERACILLIN SODIUM\TAZOBACTAM SODIUM
  11. LEVOFLOXACIN [Concomitant]
     Active Substance: LEVOFLOXACIN
  12. IVERMECTIN [Concomitant]
     Active Substance: IVERMECTIN
  13. ALBENDAZOLE [Concomitant]
     Active Substance: ALBENDAZOLE
  14. MEROPENEM [Concomitant]
     Active Substance: MEROPENEM
  15. CASPOFUNGIN [Concomitant]
     Active Substance: CASPOFUNGIN

REACTIONS (2)
  - Klebsiella infection [Unknown]
  - Strongyloidiasis [Fatal]
